FAERS Safety Report 17841367 (Version 1)
Quarter: 2020Q2

REPORT INFORMATION
  Report Type: Spontaneous
  Country: JP (occurrence: JP)
  Receive Date: 20200529
  Receipt Date: 20200529
  Transmission Date: 20200714
  Serious: Yes (Other)
  Sender: FDA-Public Use
  Company Number: JP-ACTELION-A-CH2020-205744

PATIENT
  Age: 51 Year
  Sex: Female

DRUGS (4)
  1. SILDENAFIL. [Concomitant]
     Active Substance: SILDENAFIL
  2. AMBRISENTAN [Concomitant]
     Active Substance: AMBRISENTAN
  3. BERAPROST [Concomitant]
     Active Substance: BERAPROST
  4. BOSENTAN. [Suspect]
     Active Substance: BOSENTAN
     Indication: PULMONARY ARTERIAL HYPERTENSION
     Route: 048

REACTIONS (10)
  - Chronic hepatitis C [Unknown]
  - Hepatic function abnormal [Unknown]
  - Adverse event [Unknown]
  - Polycythaemia [Unknown]
  - Renal impairment [Unknown]
  - Brain natriuretic peptide increased [Unknown]
  - Hypoxia [Unknown]
  - Hepatitis C antibody positive [Unknown]
  - Low cardiac output syndrome [Unknown]
  - Right ventricular dysfunction [Unknown]
